FAERS Safety Report 18867704 (Version 2)
Quarter: 2021Q1

REPORT INFORMATION
  Report Type: Spontaneous
  Country: US (occurrence: US)
  Receive Date: 20210209
  Receipt Date: 20210316
  Transmission Date: 20210420
  Serious: Yes (Hospitalization)
  Sender: FDA-Public Use
  Company Number: US-RADIUS HEALTH INC.-2021US000454

PATIENT
  Age: 64 Year
  Sex: Female

DRUGS (1)
  1. TYMLOS [Suspect]
     Active Substance: ABALOPARATIDE
     Indication: SENILE OSTEOPOROSIS
     Dosage: 80 MCG, DAILY, PLACED ON HOLD ON UNSPECIFIED DATE
     Route: 058
     Dates: start: 20201229

REACTIONS (2)
  - Urosepsis [Unknown]
  - Coma [Unknown]

NARRATIVE: CASE EVENT DATE: 202012
